FAERS Safety Report 22269840 (Version 7)
Quarter: 2025Q3

REPORT INFORMATION
  Report Type: Spontaneous
  Country: US (occurrence: US)
  Receive Date: 20230501
  Receipt Date: 20250820
  Transmission Date: 20251020
  Serious: No
  Sender: PFIZER
  Company Number: US-PFIZER INC-PV202300074829

PATIENT
  Age: 3 Year
  Sex: Female
  Weight: 17.01 kg

DRUGS (5)
  1. GENOTROPIN [Suspect]
     Active Substance: SOMATROPIN
     Indication: Turner^s syndrome
     Dosage: ALTERNATE 0.4 MG AND 0.5 MG DAILY
  2. GENOTROPIN [Suspect]
     Active Substance: SOMATROPIN
     Dosage: ALTERNATE 0.4 MG AND 0.5 MG DAILY
  3. GENOTROPIN [Suspect]
     Active Substance: SOMATROPIN
     Dosage: 0.4 MG, DAILY (PER DAY)
     Dates: start: 202303
  4. GENOTROPIN [Suspect]
     Active Substance: SOMATROPIN
     Dosage: 0.6 MILLIGRAMS AND THEN 0.7 MILLIGRAMS, ON ALTERNATE DAYS
  5. GENOTROPIN [Suspect]
     Active Substance: SOMATROPIN
     Dosage: 0.6 MILLIGRAMS AND THEN 0.7 MILLIGRAMS, ON ALTERNATE DAYS

REACTIONS (3)
  - Device physical property issue [Unknown]
  - Device leakage [Unknown]
  - Poor quality device used [Unknown]
